FAERS Safety Report 9848047 (Version 1)
Quarter: 2014Q1

REPORT INFORMATION
  Report Type: Report from Study
  Country: FR (occurrence: FR)
  Receive Date: 20140128
  Receipt Date: 20140128
  Transmission Date: 20141002
  Serious: Yes (Other)
  Sender: FDA-Public Use
  Company Number: FR-VERTEX PHARMACEUTICALS INC-2014-000407

PATIENT
  Sex: Male

DRUGS (1)
  1. TELAPREVIR [Suspect]
     Indication: HEPATITIS C
     Dosage: TABLET

REACTIONS (5)
  - Weight decreased [Unknown]
  - Incorrect drug administration duration [Unknown]
  - Blood pressure increased [Unknown]
  - Drug dispensing error [Unknown]
  - Haemoglobin decreased [Unknown]
